FAERS Safety Report 10051663 (Version 2)
Quarter: 2014Q2

REPORT INFORMATION
  Report Type: Spontaneous
  Country: US (occurrence: US)
  Receive Date: 20140401
  Receipt Date: 20140401
  Transmission Date: 20141212
  Serious: No
  Sender: FDA-Public Use
  Company Number: US-ASTRAZENECA-2011SE30778

PATIENT
  Age: 725 Month
  Sex: Female
  Weight: 83.9 kg

DRUGS (15)
  1. LISINOPRIL [Suspect]
     Route: 048
  2. NEXIUM [Suspect]
     Indication: GASTROOESOPHAGEAL REFLUX DISEASE
     Route: 048
     Dates: end: 201307
  3. NEXIUM [Suspect]
     Indication: GASTROOESOPHAGEAL REFLUX DISEASE
     Route: 048
     Dates: end: 201307
  4. NEXIUM [Suspect]
     Indication: DYSPHAGIA
     Route: 048
     Dates: end: 201307
  5. NEXIUM [Suspect]
     Indication: FLATULENCE
     Route: 048
     Dates: end: 201307
  6. OMEPRAZOLE [Suspect]
     Route: 048
  7. HYDROCHLORATHIAZIDE [Suspect]
     Indication: BLOOD PRESSURE ABNORMAL
     Route: 065
     Dates: start: 2011
  8. DEXILANT [Suspect]
     Route: 065
     Dates: start: 201307
  9. BABY ASPIRIN [Concomitant]
     Indication: CARDIAC DISORDER
     Route: 048
  10. IBUPROFEN [Concomitant]
     Indication: JOINT ARTHROPLASTY
     Dosage: PRN
     Route: 048
     Dates: start: 2005
  11. AMLODIPINE [Concomitant]
     Indication: BLOOD PRESSURE ABNORMAL
     Route: 048
     Dates: start: 2011
  12. TYLENOL [Concomitant]
     Indication: KNEE ARTHROPLASTY
     Dosage: PRN
     Route: 048
     Dates: start: 2005
  13. ADVIL [Concomitant]
     Indication: KNEE OPERATION
     Dosage: PRN
     Route: 048
     Dates: start: 2005
  14. ADVIL [Concomitant]
     Indication: PAIN
     Dosage: PRN
     Route: 048
     Dates: start: 2005
  15. PANTOPRAZOLE [Concomitant]

REACTIONS (7)
  - Blood pressure abnormal [Unknown]
  - Drug hypersensitivity [Unknown]
  - Nausea [Unknown]
  - Dizziness [Unknown]
  - Diarrhoea [Unknown]
  - Drug dose omission [Unknown]
  - Drug ineffective [Unknown]
